FAERS Safety Report 7357614-9 (Version None)
Quarter: 2011Q1

REPORT INFORMATION
  Report Type: 
  Country: None (occurrence: None)
  Receive Date: 20110317
  Receipt Date: 20110308
  Transmission Date: 20110831
  Serious: Yes (Death)
  Sender: FDA-Public Use
  Company Number: DE-CELGENEUS-062-50794-11012711

PATIENT
  Age: 65 Year
  Sex: Female
  Weight: 83 kg

DRUGS (6)
  1. AZATHIOPRIN [Concomitant]
     Route: 065
     Dates: start: 20100101, end: 20100101
  2. VIDAZA [Suspect]
     Route: 058
     Dates: start: 20110103
  3. PREDNISONE [Concomitant]
     Indication: CHEMOTHERAPY
     Dosage: 10 MILLIGRAM
     Route: 048
  4. VIDAZA [Suspect]
     Route: 058
     Dates: start: 20110124, end: 20110125
  5. MCP [Concomitant]
     Indication: CHEMOTHERAPY
     Route: 065
     Dates: start: 20110124, end: 20110125
  6. PREDNISONE [Concomitant]
     Route: 065

REACTIONS (2)
  - CARDIAC FAILURE [None]
  - CIRCULATORY COLLAPSE [None]
